FAERS Safety Report 22128604 (Version 1)
Quarter: 2023Q1

REPORT INFORMATION
  Report Type: Spontaneous
  Country: US (occurrence: US)
  Receive Date: 20230323
  Receipt Date: 20230323
  Transmission Date: 20230417
  Serious: No
  Sender: FDA-Public Use
  Company Number: US-009507513-2303USA003402

PATIENT
  Age: 54 Year
  Sex: Female

DRUGS (5)
  1. NOXAFIL [Suspect]
     Active Substance: POSACONAZOLE
     Indication: Histoplasmosis
     Dosage: 400 MILLIGRAM, TWICE DAILY
     Route: 048
  2. PREDNISONE [Concomitant]
     Active Substance: PREDNISONE
     Indication: Sjogren^s syndrome
     Dosage: UNK
  3. METHOTREXATE [Concomitant]
     Active Substance: METHOTREXATE
     Indication: Sjogren^s syndrome
     Dosage: UNK
  4. IMMUNE GLOBULIN NOS [Concomitant]
     Active Substance: IMMUNE GLOBULIN NOS
     Indication: Sjogren^s syndrome
     Dosage: UNK
     Route: 042
  5. VORICONAZOLE [Concomitant]
     Active Substance: VORICONAZOLE
     Indication: Histoplasmosis
     Dosage: 300 MILLIGRAM, TWICE DAILY (BID)
     Route: 048

REACTIONS (2)
  - Rash [Unknown]
  - Product use in unapproved indication [Unknown]
